FAERS Safety Report 22537901 (Version 1)
Quarter: 2023Q2

REPORT INFORMATION
  Report Type: Report from Study
  Country: KR (occurrence: KR)
  Receive Date: 20230608
  Receipt Date: 20230608
  Transmission Date: 20230722
  Serious: Yes (Other)
  Sender: FDA-Public Use
  Company Number: KR-002147023-NVSC2023KR129442

PATIENT
  Sex: Male

DRUGS (12)
  1. RYDAPT [Suspect]
     Active Substance: MIDOSTAURIN
     Indication: Acute myeloid leukaemia
     Dosage: 50 MG 1/1
     Route: 048
     Dates: start: 20230316, end: 20230316
  2. RYDAPT [Suspect]
     Active Substance: MIDOSTAURIN
     Dosage: 50 MG, BID (2 TIMES/DAY)
     Route: 048
     Dates: start: 20230317, end: 20230329
  3. RYDAPT [Suspect]
     Active Substance: MIDOSTAURIN
     Dosage: 50 MG 1/1
     Route: 048
     Dates: start: 20230330, end: 20230330
  4. RYDAPT [Suspect]
     Active Substance: MIDOSTAURIN
     Dosage: 50 MG, BID (2 TIMES/DAY)
     Route: 048
     Dates: start: 20230504, end: 20230517
  5. CYTARABINE [Concomitant]
     Active Substance: CYTARABINE
     Indication: Acute myeloid leukaemia
     Dosage: 352 MG (STRENGTH: 1G/10ML)
     Route: 042
     Dates: start: 20230308, end: 20230314
  6. CYTARABINE [Concomitant]
     Active Substance: CYTARABINE
     Dosage: 5000 MG (STRENGTH: 2G/10ML)
     Route: 042
     Dates: start: 20230427, end: 20230427
  7. CYTARABINE [Concomitant]
     Active Substance: CYTARABINE
     Dosage: 160 MG (STRENGTH: 1G/10ML)
     Route: 042
     Dates: start: 20230427, end: 20230427
  8. CYTARABINE [Concomitant]
     Active Substance: CYTARABINE
     Dosage: 5000 MG (STRENGTH: 2G/10ML)
     Route: 042
     Dates: start: 20230429, end: 20230429
  9. CYTARABINE [Concomitant]
     Active Substance: CYTARABINE
     Dosage: 160 MG (STRENGTH: 1G/10ML)
     Route: 042
     Dates: start: 20230429, end: 20230429
  10. CYTARABINE [Concomitant]
     Active Substance: CYTARABINE
     Dosage: 5000 MG (STRENGTH: 2G/10ML)
     Route: 042
     Dates: start: 20230501, end: 20230501
  11. CYTARABINE [Concomitant]
     Active Substance: CYTARABINE
     Dosage: 160 MG (STRENGTH: 1G/10ML)
     Route: 042
     Dates: start: 20230501, end: 20230501
  12. DAUNORUBICIN HYDROCHLORIDE [Concomitant]
     Active Substance: DAUNORUBICIN HYDROCHLORIDE
     Indication: Acute myeloid leukaemia
     Dosage: 158.4 MG
     Route: 042
     Dates: start: 20230308, end: 20230310

REACTIONS (1)
  - Bacteraemia [Recovered/Resolved]

NARRATIVE: CASE EVENT DATE: 20230322
